FAERS Safety Report 11106732 (Version 1)
Quarter: 2015Q2

REPORT INFORMATION
  Report Type: Spontaneous
  Country: CA (occurrence: CA)
  Receive Date: 20150512
  Receipt Date: 20150512
  Transmission Date: 20150821
  Serious: Yes (Other)
  Sender: FDA-Public Use
  Company Number: CA-TEVA-561755ACC

PATIENT
  Age: 66 Year
  Sex: Female
  Weight: 62.65 kg

DRUGS (3)
  1. PANTOPRAZOLE [Suspect]
     Active Substance: PANTOPRAZOLE SODIUM
     Indication: GASTROOESOPHAGEAL REFLUX DISEASE
     Dosage: 80 MILLIGRAM DAILY;
     Route: 048
  2. ENTERIC COATED A.S.A [Concomitant]
     Dosage: UNKNOWN FORM STRENGTH
     Route: 065
  3. LOSARTAN [Concomitant]
     Active Substance: LOSARTAN
     Dosage: UNKNOWN FORM STRENGTH
     Route: 065

REACTIONS (2)
  - Cough [Unknown]
  - Condition aggravated [Unknown]
